FAERS Safety Report 4676936-3 (Version None)
Quarter: 2005Q2

REPORT INFORMATION
  Report Type: 
  Country: None (occurrence: None)
  Receive Date: 20050530
  Receipt Date: 20050303
  Transmission Date: 20051028
  Serious: Yes (Hospitalization, Disabling)
  Sender: FDA-Public Use
  Company Number: JP-SP-2005-00505

PATIENT
  Age: 67 Year
  Sex: Male

DRUGS (9)
  1. IMMUCYST [Suspect]
     Indication: BLADDER CANCER
     Route: 050
     Dates: start: 20040827, end: 20041022
  2. IMMUCYST [Suspect]
     Route: 050
     Dates: start: 20040827, end: 20041022
  3. CISPLATIN [Suspect]
     Indication: BLADDER CANCER
     Route: 042
     Dates: start: 20041006
  4. CISPLATIN [Suspect]
     Route: 042
     Dates: start: 20041006
  5. EPIRUBICIN [Suspect]
     Indication: BLADDER CANCER
     Route: 042
     Dates: start: 20041006
  6. CARBAZOCHROME SODIUM SULFONATE [Concomitant]
     Indication: HAEMATURIA
     Route: 048
     Dates: start: 20040826, end: 20040828
  7. NAFTOPIDIL [Concomitant]
     Indication: URINARY RETENTION
     Route: 048
     Dates: start: 20040919, end: 20041116
  8. LOXOPROFEN SODIUM [Concomitant]
     Indication: URINARY RETENTION
     Route: 048
     Dates: start: 20040910, end: 20041027
  9. AMITRIPTYLINE HYDROCHLORIDE [Concomitant]
     Indication: POLLAKIURIA
     Route: 048
     Dates: start: 20030927, end: 20041117

REACTIONS (5)
  - BLADDER CONSTRICTION [None]
  - BLADDER DISTENSION [None]
  - DYSURIA [None]
  - HAEMATURIA [None]
  - POLLAKIURIA [None]
